FAERS Safety Report 13847859 (Version 1)
Quarter: 2017Q3

REPORT INFORMATION
  Report Type: Spontaneous
  Country: US (occurrence: US)
  Receive Date: 20170808
  Receipt Date: 20170808
  Transmission Date: 20171127
  Serious: Yes (Death)
  Sender: FDA-Public Use
  Company Number: None

PATIENT
  Age: 79 Year
  Sex: Female
  Weight: 67.8 kg

DRUGS (1)
  1. WARFARIN [Suspect]
     Active Substance: WARFARIN
     Indication: ATRIAL FIBRILLATION
     Route: 048

REACTIONS (10)
  - Head injury [None]
  - Haemoglobin decreased [None]
  - Confusional state [None]
  - Somnolence [None]
  - Hypotension [None]
  - Haematochezia [None]
  - Acquired oesophageal web [None]
  - Fall [None]
  - International normalised ratio increased [None]
  - Gastritis [None]

NARRATIVE: CASE EVENT DATE: 20170725
